FAERS Safety Report 16676140 (Version 1)
Quarter: 2019Q3

REPORT INFORMATION
  Report Type: Other
  Country: ES (occurrence: ES)
  Receive Date: 20190807
  Receipt Date: 20190807
  Transmission Date: 20191004
  Serious: Yes (Other)
  Sender: FDA-Public Use
  Company Number: ES-DENTSPLY-2019SCDP000426

PATIENT
  Age: 2 Year
  Sex: Female
  Weight: 16 kg

DRUGS (1)
  1. PRILOCAINE AND LIDOCAINE [Suspect]
     Active Substance: LIDOCAINE\PRILOCAINE
     Indication: LOCAL ANAESTHESIA
     Dosage: ADMINISTRAR 30MIN ANTES DE INTERVENCION
     Route: 061
     Dates: start: 20190610, end: 20190610

REACTIONS (2)
  - Application site rash [None]
  - Impetigo [None]

NARRATIVE: CASE EVENT DATE: 20190610
